FAERS Safety Report 6589453-0 (Version None)
Quarter: 2010Q1

REPORT INFORMATION
  Report Type: 
  Country: None (occurrence: None)
  Receive Date: 20100218
  Receipt Date: 20100209
  Transmission Date: 20100710
  Serious: Yes (Other)
  Sender: FDA-Public Use
  Company Number: JP-MERCK-1002USA01815

PATIENT
  Age: 32 Year
  Sex: Female

DRUGS (10)
  1. EMEND [Suspect]
     Indication: PROPHYLAXIS OF NAUSEA AND VOMITING
     Route: 048
     Dates: start: 20100130, end: 20100130
  2. EMEND [Suspect]
     Route: 065
     Dates: start: 20100131, end: 20100203
  3. ZOFRAN [Concomitant]
     Route: 065
  4. TEMODAL [Concomitant]
     Route: 065
  5. LAC-B [Concomitant]
     Route: 065
  6. EXCEGRAN [Concomitant]
     Route: 065
  7. MYSLEE [Concomitant]
     Route: 065
  8. SELENICA R [Concomitant]
     Route: 065
  9. DEPAS [Concomitant]
     Route: 065
  10. TERPERAN [Concomitant]
     Route: 065

REACTIONS (1)
  - HALLUCINATION [None]
